FAERS Safety Report 10235635 (Version 2)
Quarter: 2014Q2

REPORT INFORMATION
  Report Type: Spontaneous
  Country: DE (occurrence: DE)
  Receive Date: 20140613
  Receipt Date: 20140613
  Transmission Date: 20141212
  Serious: Yes (Other)
  Sender: FDA-Public Use
  Company Number: DE-SHIRE-DE201402191

PATIENT
  Age: 43 Year
  Sex: Male
  Weight: 100 kg

DRUGS (2)
  1. XAGRID [Suspect]
     Indication: ESSENTIAL THROMBOCYTHAEMIA
     Dosage: 0.5 MG, 2X/DAY:BID
     Route: 048
     Dates: start: 20111031
  2. XAGRID [Suspect]
     Dosage: 2 MG, 2X/DAY:BID
     Route: 048

REACTIONS (3)
  - Diabetes mellitus [Unknown]
  - Renal impairment [Unknown]
  - Blood creatinine increased [Unknown]
